FAERS Safety Report 25101235 (Version 2)
Quarter: 2025Q1

REPORT INFORMATION
  Report Type: Spontaneous
  Country: US (occurrence: US)
  Receive Date: 20250320
  Receipt Date: 20250327
  Transmission Date: 20250409
  Serious: No
  Sender: PAREXEL
  Company Number: US-COHERUS BIOSCIENCES, INC-2025-COH-US000205

PATIENT

DRUGS (11)
  1. UDENYCA [Suspect]
     Active Substance: PEGFILGRASTIM-CBQV
     Indication: Prophylaxis
     Dosage: 6 MG, Q3WEEKS
     Route: 058
     Dates: start: 20250220
  2. PLAVIX [Concomitant]
     Active Substance: CLOPIDOGREL BISULFATE
  3. ALLOPURINOL [Concomitant]
     Active Substance: ALLOPURINOL
  4. PANTOPRAZOLE [Concomitant]
     Active Substance: PANTOPRAZOLE
  5. MYRBETRIQ [Concomitant]
     Active Substance: MIRABEGRON
  6. LYRICA [Concomitant]
     Active Substance: PREGABALIN
  7. NEBIVOLOL [Concomitant]
     Active Substance: NEBIVOLOL
  8. LIPITOR [Concomitant]
     Active Substance: ATORVASTATIN CALCIUM
  9. PREDNISONE [Concomitant]
     Active Substance: PREDNISONE
  10. ATIVAN [Concomitant]
     Active Substance: LORAZEPAM
  11. KLOR-CON M10 [Concomitant]
     Active Substance: POTASSIUM CHLORIDE

REACTIONS (4)
  - Neutrophil count decreased [Recovered/Resolved]
  - Device malfunction [Unknown]
  - Treatment noncompliance [Unknown]
  - Product dose omission issue [Unknown]

NARRATIVE: CASE EVENT DATE: 20250221
